FAERS Safety Report 23424867 (Version 1)
Quarter: 2024Q1

REPORT INFORMATION
  Report Type: Spontaneous
  Country: US (occurrence: US)
  Receive Date: 20240121
  Receipt Date: 20240121
  Transmission Date: 20240410
  Serious: Yes (Other)
  Sender: FDA-Public Use
  Company Number: US-STRIDES ARCOLAB LIMITED-2024SP000512

PATIENT
  Age: 56 Year
  Sex: Male

DRUGS (2)
  1. PREDNISOLONE [Suspect]
     Active Substance: PREDNISOLONE
     Indication: Colitis ulcerative
     Dosage: UNK, ABRUPT DISCONTINUATION OF PREDNISOLONE
     Route: 065
  2. PREDNISOLONE [Suspect]
     Active Substance: PREDNISOLONE
     Dosage: UNK, PREDNISONE WAS RESTARTED
     Route: 065

REACTIONS (3)
  - Endocrine ophthalmopathy [Unknown]
  - Unmasking of previously unidentified disease [Unknown]
  - Treatment noncompliance [Unknown]
